FAERS Safety Report 7236481-8 (Version None)
Quarter: 2011Q1

REPORT INFORMATION
  Report Type: 
  Country: None (occurrence: None)
  Receive Date: 20110112
  Receipt Date: 20101230
  Transmission Date: 20110831
  Serious: Yes (Other)
  Sender: FDA-Public Use
  Company Number: FR-004359

PATIENT
  Sex: Male

DRUGS (5)
  1. LODOZ [Concomitant]
  2. FIRMAGON [Suspect]
     Indication: PROSTATE CANCER
     Dosage: (240 MG 1X SUBCUTANEOUS)
     Route: 058
     Dates: start: 20101130, end: 20101130
  3. TAHOR [Concomitant]
  4. KARDEGIC [Concomitant]
  5. CARDENSIEL [Concomitant]

REACTIONS (3)
  - WEIGHT DECREASED [None]
  - GENERAL PHYSICAL HEALTH DETERIORATION [None]
  - HEPATITIS [None]
